FAERS Safety Report 7741324-X (Version None)
Quarter: 2011Q3

REPORT INFORMATION
  Report Type: 
  Country: None (occurrence: None)
  Receive Date: 20110909
  Receipt Date: 20110907
  Transmission Date: 20111222
  Serious: Yes (Hospitalization)
  Sender: FDA-Public Use
  Company Number: CZ-BAYER-2011-081363

PATIENT
  Sex: Female

DRUGS (6)
  1. VESICARE [Concomitant]
  2. CORTICOSTEROID NOS [Concomitant]
     Dosage: UNK
     Dates: end: 20110101
  3. VIREGYT-K [Concomitant]
  4. BETASERON [Suspect]
     Dosage: UNK
     Dates: start: 20030801, end: 20110801
  5. CALTRATE PLUS [Concomitant]
  6. APO-FLUOXETINE [Concomitant]

REACTIONS (3)
  - HAEMOLYTIC ANAEMIA [None]
  - RENAL FAILURE [None]
  - THROMBOCYTOPENIA [None]
